FAERS Safety Report 20467036 (Version 1)
Quarter: 2022Q1

REPORT INFORMATION
  Report Type: Spontaneous
  Country: US (occurrence: US)
  Receive Date: 20220214
  Receipt Date: 20220214
  Transmission Date: 20220424
  Serious: No
  Sender: FDA-Public Use
  Company Number: US-AMGEN-USASP2022023516

PATIENT
  Age: 64 Year
  Sex: Female

DRUGS (5)
  1. BEVACIZUMAB [Suspect]
     Active Substance: BEVACIZUMAB
     Indication: Radiation myelopathy
     Dosage: 5 MG/KG, Q2WK
     Route: 065
  2. BEVACIZUMAB [Suspect]
     Active Substance: BEVACIZUMAB
     Dosage: 7.5 MG/KG, Q2WK
     Route: 065
  3. FULVESTRANT [Concomitant]
     Active Substance: FULVESTRANT
     Indication: Radiation myelopathy
     Dosage: UNK
  4. DEXAMETHASONE [Concomitant]
     Active Substance: DEXAMETHASONE
     Indication: Radiation myelopathy
  5. APIXABAN [Concomitant]
     Active Substance: APIXABAN
     Indication: Deep vein thrombosis

REACTIONS (3)
  - Fatigue [Unknown]
  - Drug effective for unapproved indication [Unknown]
  - Off label use [Unknown]
